FAERS Safety Report 8511945-5 (Version None)
Quarter: 2012Q2

REPORT INFORMATION
  Report Type: 
  Country: None (occurrence: None)
  Receive Date: 20120405
  Receipt Date: 20080807
  Transmission Date: 20120825
  Serious: Yes (Disabling)
  Sender: FDA-Public Use
  Company Number: PHEH2008US06643

PATIENT
  Age: 63 Year
  Sex: Female
  Weight: 81.2 kg

DRUGS (10)
  1. OMEPRAZOLE [Concomitant]
  2. RECLAST [Suspect]
     Indication: OSTEOPOROSIS
     Dosage: 5 MG, ONCE/SINGLE, INFUSION
     Dates: start: 20080716
  3. GLUCOPHAGE [Concomitant]
  4. FLUTICASONE PROPIONATE [Concomitant]
  5. METOPROLOL TARTRATE [Concomitant]
  6. HYOSCYAMINE SULFATE (HYOSCYAMINE SULFATE) [Concomitant]
  7. DIOVAN [Concomitant]
  8. ISOSORBIDE DINITRATE [Concomitant]
  9. LIPITOR [Concomitant]
  10. ASPIRIN [Concomitant]

REACTIONS (7)
  - PAIN IN JAW [None]
  - LIMB DISCOMFORT [None]
  - MOBILITY DECREASED [None]
  - ORAL PAIN [None]
  - PAIN [None]
  - DYSPHAGIA [None]
  - INSOMNIA [None]
